FAERS Safety Report 8022756-1 (Version None)
Quarter: 2012Q1

REPORT INFORMATION
  Report Type: 
  Country: None (occurrence: None)
  Receive Date: 20120104
  Receipt Date: 20111228
  Transmission Date: 20120608
  Serious: Yes (Death, Hospitalization, Other)
  Sender: FDA-Public Use
  Company Number: US-ROCHE-1025937

PATIENT
  Sex: Female

DRUGS (13)
  1. APIXABAN [Suspect]
     Indication: EMBOLISM
     Route: 048
     Dates: start: 20110405, end: 20110420
  2. ALTEPLASE [Suspect]
     Indication: EMBOLISM
  3. WARFARIN SODIUM [Suspect]
     Indication: EMBOLISM
     Route: 048
     Dates: start: 20110405
  4. ALTACE [Concomitant]
  5. FAMOTIDINE [Concomitant]
  6. CRESTOR [Concomitant]
     Dates: start: 20060101
  7. TRICOR [Concomitant]
     Dates: start: 20090101
  8. CEPACOL [Concomitant]
     Dates: start: 20110405
  9. ZYRTEC [Concomitant]
  10. ASPIRIN [Concomitant]
     Dates: start: 20050101
  11. ENOXAPARIN SODIUM [Suspect]
     Indication: EMBOLISM
     Dates: start: 20110405, end: 20110410
  12. PERCOCET [Concomitant]
     Dates: start: 20110321, end: 20110405
  13. PLAVIX [Concomitant]

REACTIONS (6)
  - CARDIO-RESPIRATORY ARREST [None]
  - CEREBROVASCULAR ACCIDENT [None]
  - TONGUE OEDEMA [None]
  - PNEUMONIA [None]
  - HAEMORRHAGIC STROKE [None]
  - METASTATIC NEOPLASM [None]
